FAERS Safety Report 8228497-X (Version None)
Quarter: 2012Q1

REPORT INFORMATION
  Report Type: 
  Country: None (occurrence: None)
  Receive Date: 20120322
  Receipt Date: 20110524
  Transmission Date: 20120608
  Serious: No
  Sender: FDA-Public Use
  Company Number: US-BRISTOL-MYERS SQUIBB COMPANY-15772536

PATIENT
  Age: 59 Year
  Sex: Male

DRUGS (4)
  1. ERBITUX [Suspect]
     Dates: start: 20110511
  2. VICODIN [Concomitant]
     Indication: PAIN
  3. TYLENOL [Concomitant]
     Indication: PAIN
  4. BUTALBITAL [Concomitant]
     Indication: PAIN

REACTIONS (1)
  - RASH [None]
